FAERS Safety Report 7204699 (Version 18)
Quarter: 2013Q4

REPORT INFORMATION
  Report Type: Spontaneous
  Country: US (occurrence: US)
  Receive Date: 20091208
  Receipt Date: 20131218
  Transmission Date: 20140711
  Serious: Yes (Death, Hospitalization, Disabling, Other)
  Sender: FDA-Public Use
  Company Number: PHEH2009US16955

PATIENT
  Age: 67 Year
  Sex: Male

DRUGS (73)
  1. ZOMETA [Suspect]
     Indication: PLASMA CELL MYELOMA
     Dates: start: 20061018, end: 200801
  2. ZOMETA [Suspect]
     Indication: METASTASES TO BONE
  3. CLINDAMYCIN [Concomitant]
     Dosage: 150 MG, UNK
  4. FOLIC ACID [Concomitant]
     Dosage: 1 MG, UNK
  5. PENICILLIN VK [Concomitant]
     Dosage: 500 MG, UNK
  6. ALPRAZOLAM [Concomitant]
     Dosage: 0.5 MG, UNK
  7. DEXAMETHASONE [Concomitant]
     Dosage: 4 MG, UNK
  8. METRONIDAZOLE [Concomitant]
  9. CHLORHEXIDINE GLUCONATE [Concomitant]
  10. AVAPRO [Concomitant]
     Dosage: 150 MG, UNK
  11. LIDOCAINE [Concomitant]
  12. ATROP [Concomitant]
     Dosage: 2.5 MG, UNK
  13. NOVOBIOCIN [Concomitant]
  14. CARISOPRODOL [Concomitant]
     Dosage: 350 MG, UNK
  15. FUROSEMIDE [Concomitant]
     Dosage: 40 MG, UNK
  16. POTASSIUM CHLORIDE [Concomitant]
     Dosage: 10 MEQ, UNK
  17. LANTUS [Concomitant]
  18. OXYCOD [Concomitant]
  19. FLOMAX ^BOEHRINGER INGELHEIM^ [Concomitant]
  20. ACTOS [Concomitant]
  21. ZOVIRAX [Concomitant]
  22. GLUCOTROL [Concomitant]
  23. LIPITOR [Concomitant]
  24. ACCUPRIL [Concomitant]
  25. PROMETHAZINE W/CODEINE [Concomitant]
  26. AUGMENTIN [Concomitant]
  27. BENZONATATE [Concomitant]
  28. ZYRTEC [Concomitant]
  29. ADVANTAGE [Concomitant]
  30. NASONEX [Concomitant]
  31. LEVAQUIN [Concomitant]
  32. GUAIFED-PD [Concomitant]
  33. HYDROCODONE [Concomitant]
  34. HUMIBID [Concomitant]
  35. TUSSIONEX [Concomitant]
  36. PROTONIX [Concomitant]
  37. QUINAPRIL [Concomitant]
  38. ZITHROMAX [Concomitant]
  39. FAMVIR [Concomitant]
  40. PROCHLORPERAZINE [Concomitant]
  41. NEUPOGEN [Concomitant]
  42. AZMACORT [Concomitant]
  43. ARANESP [Concomitant]
  44. DUONEB [Concomitant]
  45. TARCEVA [Concomitant]
  46. ZETIA [Concomitant]
  47. LOPROX [Concomitant]
  48. DOXYCYCLA [Concomitant]
  49. CEPHALEXIN [Concomitant]
  50. VYTORIN [Concomitant]
  51. VALTREX [Concomitant]
  52. CIPROFLOXACIN [Concomitant]
  53. ATACAND [Concomitant]
  54. CYCLOBENZAPRINE [Concomitant]
  55. NAPROXEN [Concomitant]
  56. PREDNISOLONE ACETATE [Concomitant]
  57. PHENAZOPYRIDINE [Concomitant]
  58. FLUCONAZOLE [Concomitant]
  59. HYDROMORPHONE [Concomitant]
  60. FINASTERIDE [Concomitant]
  61. NEXIUM [Concomitant]
  62. DURAGESIC [Concomitant]
  63. LORAZEPAM [Concomitant]
  64. METOPROLOL [Concomitant]
  65. SERTRALINE [Concomitant]
  66. MUPIROCIN [Concomitant]
  67. INSULIN [Concomitant]
  68. ONDANSETRON [Concomitant]
  69. SIMVASTATIN [Concomitant]
  70. ALIMTA [Concomitant]
  71. NAVELBINE ^ASTA MEDICA^ [Concomitant]
  72. GEMAZAR [Concomitant]
  73. CARBOPLATIN [Concomitant]

REACTIONS (111)
  - Death [Fatal]
  - Periodontitis [Unknown]
  - Osteonecrosis of jaw [Not Recovered/Not Resolved]
  - Injury [Unknown]
  - Bone erosion [Unknown]
  - Dental caries [Unknown]
  - Pain [Unknown]
  - Anxiety [Unknown]
  - Exposed bone in jaw [Unknown]
  - Impaired healing [Unknown]
  - Jaw fracture [Unknown]
  - Hypoaesthesia [Unknown]
  - Tooth loss [Unknown]
  - Sepsis [Unknown]
  - Osteomyelitis [Unknown]
  - Dysphagia [Unknown]
  - Tooth abscess [Unknown]
  - Anhedonia [Unknown]
  - Prostate cancer metastatic [Unknown]
  - Prostatomegaly [Unknown]
  - Ureteral neoplasm [Unknown]
  - Alopecia [Unknown]
  - Pancytopenia [Unknown]
  - Leukopenia [Unknown]
  - Anaemia [Unknown]
  - Spleen disorder [Unknown]
  - Hydrocele [Unknown]
  - Haematuria [Unknown]
  - Hydronephrosis [Recovered/Resolved]
  - Hydroureter [Unknown]
  - Renal failure [Unknown]
  - Dysuria [Unknown]
  - Neuropathy peripheral [Unknown]
  - Emphysema [Unknown]
  - Bullous lung disease [Unknown]
  - Uterine mass [Unknown]
  - Gastroenteritis radiation [Unknown]
  - Inguinal hernia [Unknown]
  - Coronary artery disease [Unknown]
  - Depression [Unknown]
  - Diverticulum intestinal [Unknown]
  - Arteriosclerosis [Unknown]
  - Lymphoedema [Unknown]
  - Epistaxis [Unknown]
  - Radiculopathy [Unknown]
  - Penile infection [Unknown]
  - Atelectasis [Unknown]
  - Ascites [Unknown]
  - Insomnia [Unknown]
  - Cardiac tamponade [Unknown]
  - Femur fracture [Unknown]
  - Abdominal pain [Unknown]
  - Renal colic [Unknown]
  - Constipation [Unknown]
  - Blood urine present [Unknown]
  - Urethral obstruction [Unknown]
  - Rotator cuff syndrome [Unknown]
  - Peripheral vascular disorder [Unknown]
  - Fibula fracture [Unknown]
  - Gait disturbance [Unknown]
  - Cellulitis [Unknown]
  - Bursitis [Unknown]
  - Osteoarthritis [Unknown]
  - Musculoskeletal pain [Unknown]
  - Pathological fracture [Unknown]
  - Tibia fracture [Unknown]
  - Decubitus ulcer [Unknown]
  - Vision blurred [Unknown]
  - Testicular pain [Unknown]
  - Dyspepsia [Unknown]
  - Ingrowing nail [Unknown]
  - Pain in extremity [Unknown]
  - Paronychia [Unknown]
  - Nausea [Unknown]
  - Groin pain [Unknown]
  - Nephrolithiasis [Unknown]
  - Vomiting [Unknown]
  - Arthralgia [Unknown]
  - Fall [Unknown]
  - Neck pain [Unknown]
  - Back pain [Unknown]
  - Chest pain [Unknown]
  - Tachycardia [Unknown]
  - Myositis [Unknown]
  - Local swelling [Unknown]
  - Splenic lesion [Unknown]
  - Malignant pericardial neoplasm [Unknown]
  - Second primary malignancy [Unknown]
  - Pericardial effusion malignant [Unknown]
  - Eye naevus [Unknown]
  - Cataract [Unknown]
  - Encephalomalacia [Unknown]
  - Gliosis [Unknown]
  - Sinus disorder [Unknown]
  - Calculus ureteric [Unknown]
  - Metastases to large intestine [Unknown]
  - Flank pain [Unknown]
  - Acute myocardial infarction [Unknown]
  - Atrial fibrillation [Unknown]
  - Mass [Unknown]
  - Aortic calcification [Unknown]
  - Aortic arteriosclerosis [Unknown]
  - Toothache [Unknown]
  - Pain in jaw [Unknown]
  - Swelling [Unknown]
  - Bone swelling [Unknown]
  - Ecchymosis [Unknown]
  - Goitre [Unknown]
  - Lung infiltration [Unknown]
  - Aortic disorder [Unknown]
  - Ear pain [Unknown]
